FAERS Safety Report 8492198-3 (Version None)
Quarter: 2012Q3

REPORT INFORMATION
  Report Type: 
  Country: None (occurrence: None)
  Receive Date: 20120706
  Receipt Date: 20120702
  Transmission Date: 20120928
  Serious: Yes (Hospitalization)
  Sender: FDA-Public Use
  Company Number: US-BAYER-2011-099688

PATIENT
  Age: 20 Year
  Sex: Female

DRUGS (5)
  1. ACETAMINOPHEN AND HYDROCODONE BITARTRATE [Concomitant]
     Indication: BACK PAIN
     Dosage: 500 MG - 5 MG, Q 4HRS PRN
     Route: 048
     Dates: start: 20080830, end: 20090921
  2. YASMIN [Suspect]
     Dosage: UNK
     Route: 048
     Dates: start: 20040101
  3. YAZ [Suspect]
     Dosage: UNK
     Route: 048
     Dates: start: 20040101
  4. PREVACID [Concomitant]
     Dosage: 30 MG, ONCE Q DAY
     Route: 048
     Dates: start: 20080830
  5. ZOFRAN [Concomitant]

REACTIONS (9)
  - CHOLECYSTITIS CHRONIC [None]
  - ACNE [None]
  - WEIGHT INCREASED [None]
  - PAIN [None]
  - PSYCHOLOGICAL TRAUMA [None]
  - GALLBLADDER DISORDER [None]
  - INJURY [None]
  - ANXIETY [None]
  - EMOTIONAL DISTRESS [None]
